FAERS Safety Report 19950279 (Version 3)
Quarter: 2021Q4

REPORT INFORMATION
  Report Type: Spontaneous
  Country: US (occurrence: US)
  Receive Date: 20211013
  Receipt Date: 20211020
  Transmission Date: 20220303
  Serious: Yes (Other)
  Sender: FDA-Public Use
  Company Number: US-SA-SAC20211007000906

PATIENT
  Sex: Female
  Weight: 76 kg

DRUGS (4)
  1. DUPIXENT [Suspect]
     Active Substance: DUPILUMAB
     Indication: Illness
     Dosage: 300 MG, QOW
     Route: 058
  2. DUPIXENT [Suspect]
     Active Substance: DUPILUMAB
     Dosage: UNK, Q3W
     Route: 058
  3. ARIPIPRAZOLE [Concomitant]
     Active Substance: ARIPIPRAZOLE
     Dosage: 5 MG
  4. BUPROPION [Concomitant]
     Active Substance: BUPROPION
     Dosage: 300 MG (ER 24 HR)

REACTIONS (7)
  - Diabetes mellitus [Unknown]
  - Paraesthesia [Unknown]
  - Dry skin [Unknown]
  - Pruritus [Unknown]
  - Skin swelling [Unknown]
  - Off label use [Unknown]
  - Product use in unapproved indication [Unknown]
